FAERS Safety Report 5741855-8 (Version None)
Quarter: 2008Q2

REPORT INFORMATION
  Report Type: 
  Country: None (occurrence: None)
  Receive Date: 20080519
  Receipt Date: 20080417
  Transmission Date: 20081010
  Serious: No
  Sender: FDA-Public Use
  Company Number: US-BAYER-200820895NA

PATIENT
  Age: 32 Year
  Sex: Female
  Weight: 58 kg

DRUGS (5)
  1. MIRENA [Suspect]
     Indication: DRUG USE FOR UNKNOWN INDICATION
     Route: 015
     Dates: start: 20080301
  2. ZYRTEC [Concomitant]
  3. CLARITIN [Concomitant]
  4. MERCET [Concomitant]
  5. FOAM [Concomitant]

REACTIONS (1)
  - WEIGHT INCREASED [None]
